FAERS Safety Report 9955458 (Version 1)
Quarter: 2014Q1

REPORT INFORMATION
  Report Type: Report from Study
  Country: US (occurrence: US)
  Receive Date: 20140304
  Receipt Date: 20140304
  Transmission Date: 20141002
  Serious: No
  Sender: FDA-Public Use
  Company Number: US-ABBVIE-13P-163-1083890-00

PATIENT
  Age: 34 Year
  Sex: Female

DRUGS (5)
  1. HUMIRA [Suspect]
     Indication: PSORIASIS
     Dosage: STARTING DOSE
     Dates: start: 2010, end: 2010
  2. HUMIRA [Suspect]
     Dosage: ONE WEEK FOLLOWING STARTER DOSE
  3. HUMIRA [Suspect]
  4. PAXIL [Concomitant]
     Indication: ANXIETY
     Dosage: IN THE EVENING
     Route: 048
  5. ALPRAZOLAM [Concomitant]
     Indication: ANXIETY
     Dosage: UP TO TWICE DAILY
     Route: 048

REACTIONS (3)
  - Device malfunction [Unknown]
  - Injection site pain [Recovered/Resolved]
  - Incorrect dose administered [Unknown]
